FAERS Safety Report 7021936-1 (Version None)
Quarter: 2010Q3

REPORT INFORMATION
  Report Type: 
  Country: None (occurrence: None)
  Receive Date: 20100930
  Receipt Date: 20100727
  Transmission Date: 20110219
  Serious: Yes (Hospitalization)
  Sender: FDA-Public Use
  Company Number: US-BAYER-201030877NA

PATIENT
  Age: 41 Year
  Sex: Female
  Weight: 58 kg

DRUGS (14)
  1. YAZ [Suspect]
     Indication: PRODUCT USED FOR UNKNOWN INDICATION
     Dates: start: 20070607, end: 20091207
  2. OCELLA [Suspect]
     Indication: PRODUCT USED FOR UNKNOWN INDICATION
     Dates: start: 20070607, end: 20091207
  3. YASMIN [Suspect]
     Indication: PRODUCT USED FOR UNKNOWN INDICATION
     Dates: start: 20070101
  4. BENICAR [Concomitant]
     Dates: start: 20080101
  5. MAXALT [Concomitant]
  6. BLOOD PRESSURE MEDICATION NOS [Concomitant]
  7. WELLBUTRIN SR [Concomitant]
  8. EFFEXOR XR [Concomitant]
  9. DARVOCET [Concomitant]
  10. VALTREX [Concomitant]
  11. BYSTOLIC [Concomitant]
  12. BUDEPRION [Concomitant]
  13. PROPOXYPHENE HCL [Concomitant]
  14. PANTOPRATE [Concomitant]

REACTIONS (9)
  - ABDOMINAL PAIN UPPER [None]
  - BILIARY DYSKINESIA [None]
  - CHEST DISCOMFORT [None]
  - CHOLECYSTITIS CHRONIC [None]
  - DYSPNOEA [None]
  - MYOCARDIAL INFARCTION [None]
  - NAUSEA [None]
  - PAIN IN EXTREMITY [None]
  - PAIN IN JAW [None]
